FAERS Safety Report 23776641 (Version 3)
Quarter: 2024Q3

REPORT INFORMATION
  Report Type: Spontaneous
  Country: US (occurrence: US)
  Receive Date: 20240424
  Receipt Date: 20240717
  Transmission Date: 20241017
  Serious: Yes (Hospitalization)
  Sender: UCB
  Company Number: US-UCBSA-2024003458

PATIENT
  Sex: Female
  Weight: 56.689 kg

DRUGS (2)
  1. BIMZELX [Suspect]
     Active Substance: BIMEKIZUMAB-BKZX
     Indication: Psoriasis
     Dosage: INJECT 320MG (2 PENS) SUBCUTANEOUSLY AT WEEKS 4,8,12, AND WEEK 16 AS DIRECTED
     Route: 058
     Dates: start: 202312
  2. BIMZELX [Suspect]
     Active Substance: BIMEKIZUMAB-BKZX
     Dosage: INJECT 320MG (2 PENS) SUBCUTANEOUSLY AT WEEKS 4,8,12, AND WEEK 16 AS DIRECTED
     Route: 058
     Dates: start: 202407

REACTIONS (4)
  - Injury [Unknown]
  - Hyperhidrosis [Unknown]
  - Temperature intolerance [Unknown]
  - Inappropriate schedule of product administration [Unknown]
